FAERS Safety Report 16912655 (Version 1)
Quarter: 2019Q4

REPORT INFORMATION
  Report Type: Spontaneous
  Country: CA (occurrence: CA)
  Receive Date: 20191014
  Receipt Date: 20191014
  Transmission Date: 20200122
  Serious: Yes (Disabling)
  Sender: FDA-Public Use
  Company Number: CA-TEVA-2019-CA-1119835

PATIENT
  Age: 49 Year
  Sex: Male
  Weight: 86 kg

DRUGS (1)
  1. ROSUVASTATIN. [Suspect]
     Active Substance: ROSUVASTATIN
     Dosage: 20 MILLIGRAM DAILY;
     Route: 048

REACTIONS (2)
  - Retinal injury [Recovered/Resolved]
  - Vision blurred [Recovered/Resolved]
